FAERS Safety Report 7434404-X (Version None)
Quarter: 2011Q2

REPORT INFORMATION
  Report Type: 
  Country: None (occurrence: None)
  Receive Date: 20110425
  Receipt Date: 20110411
  Transmission Date: 20111010
  Serious: Yes (Hospitalization)
  Sender: FDA-Public Use
  Company Number: PHHO2011KR02074

PATIENT
  Sex: Male
  Weight: 121 kg

DRUGS (11)
  1. XENICAL [Concomitant]
     Indication: OBESITY
     Dosage: 120 MG, TID
     Route: 048
     Dates: start: 20100212, end: 20110325
  2. TRENTAL [Concomitant]
     Indication: CARDIOVASCULAR EVENT PROPHYLAXIS
     Dosage: 400 MG, BID
     Route: 048
     Dates: start: 20100212, end: 20110325
  3. DESMOPRESSIN ACETATE [Concomitant]
     Indication: HYPOPITUITARISM
     Dosage: 0.1 MG/ML, UNK
     Dates: start: 20070406, end: 20110325
  4. DILATREND [Concomitant]
     Indication: CONGESTIVE CARDIOMYOPATHY
     Dosage: 6.25 MG, BID
     Route: 048
     Dates: start: 20091005, end: 20110325
  5. TORSEMIDE [Concomitant]
     Indication: CONGESTIVE CARDIOMYOPATHY
     Dosage: 5 MG, QD
     Dates: start: 20100708, end: 20110325
  6. TRIMETAZIDINE [Concomitant]
     Indication: CONGESTIVE CARDIOMYOPATHY
     Dosage: 35 MG, BID
     Route: 048
     Dates: start: 20100411, end: 20110325
  7. PREDNISOLONE [Concomitant]
     Indication: HYPOPITUITARISM
  8. BLINDED ALISKIREN [Suspect]
     Indication: CARDIAC FAILURE
     Dosage: CODE NOT BROKEN
     Route: 048
     Dates: start: 20100310
  9. BLINDED ENALAPRIL [Suspect]
     Indication: CARDIAC FAILURE
     Dosage: CODE NOT BROKEN
     Route: 048
     Dates: start: 20100310
  10. BLINDED NO TREATMENT RECEIVED [Suspect]
     Indication: CARDIAC FAILURE
     Dosage: CODE NOT BROKEN
     Route: 048
     Dates: start: 20100310
  11. SYNTHROID [Concomitant]
     Indication: HYPOPITUITARISM

REACTIONS (6)
  - DYSPNOEA [None]
  - OEDEMA [None]
  - CARDIAC FAILURE CONGESTIVE [None]
  - ATRIAL FIBRILLATION [None]
  - ORTHOPNOEA [None]
  - CONDITION AGGRAVATED [None]
